FAERS Safety Report 4464360-8 (Version None)
Quarter: 2004Q4

REPORT INFORMATION
  Report Type: 
  Country: None (occurrence: None)
  Receive Date: 20041001
  Receipt Date: 20040819
  Transmission Date: 20050328
  Serious: Yes (Hospitalization)
  Sender: FDA-Public Use
  Company Number: IE-MERCK-0408GBR00177

PATIENT
  Age: 57 Year
  Sex: Female

DRUGS (5)
  1. ATORVASTATIN CALCIUM [Concomitant]
     Route: 065
  2. BISOPROLOL FUMARATE [Concomitant]
     Route: 065
  3. BUMETANIDE [Concomitant]
     Route: 065
  4. VIOXX [Suspect]
     Route: 048
     Dates: start: 20020101
  5. VALSARTAN [Concomitant]
     Route: 065

REACTIONS (1)
  - EOSINOPHILIA [None]
